FAERS Safety Report 9030293 (Version 1)
Quarter: 2013Q1

REPORT INFORMATION
  Report Type: Spontaneous
  Country: TR (occurrence: TR)
  Receive Date: 20130122
  Receipt Date: 20130122
  Transmission Date: 20140127
  Serious: Yes (Hospitalization, Other)
  Sender: FDA-Public Use
  Company Number: PHHY2013TR004645

PATIENT
  Age: 42 Year
  Sex: Male

DRUGS (3)
  1. FLUOXETINE [Suspect]
     Indication: AFFECTIVE DISORDER
     Dosage: 40 MG, PER DAY
  2. UNSPECIFIED INGREDIENT [Interacting]
     Indication: HAEMORRHOIDS
  3. QUETIAPINE [Concomitant]

REACTIONS (13)
  - Serotonin syndrome [Recovered/Resolved]
  - Confusional state [Recovered/Resolved]
  - Tremor [Recovered/Resolved]
  - Agitation [Recovered/Resolved]
  - Hyperhidrosis [Recovered/Resolved]
  - Nausea [Recovered/Resolved]
  - Vomiting [Recovered/Resolved]
  - Disorientation [Recovered/Resolved]
  - Mydriasis [Recovered/Resolved]
  - Hyperreflexia [Recovered/Resolved]
  - Delirium [Recovered/Resolved]
  - Hallucination, visual [Recovered/Resolved]
  - Drug interaction [Unknown]
